FAERS Safety Report 20703681 (Version 1)
Quarter: 2022Q2

REPORT INFORMATION
  Report Type: Spontaneous
  Country: US (occurrence: US)
  Receive Date: 20220413
  Receipt Date: 20220413
  Transmission Date: 20220720
  Serious: Yes (Other)
  Sender: FDA-Public Use
  Company Number: US-MLMSERVICE-20220318-3444062-1

PATIENT
  Age: 19 Year
  Sex: Female

DRUGS (2)
  1. SERTRALINE [Suspect]
     Active Substance: SERTRALINE HYDROCHLORIDE
     Indication: Anxiety
     Dosage: UNK
     Route: 065
  2. ORTHO MICRONOR [Concomitant]
     Active Substance: NORETHINDRONE
     Indication: Contraception
     Dosage: 0.35 MILLIGRAM, ONCE A DAY
     Route: 048

REACTIONS (4)
  - Feeling abnormal [Unknown]
  - Condition aggravated [Recovering/Resolving]
  - Mast cell activation syndrome [Recovering/Resolving]
  - Head discomfort [Unknown]
